FAERS Safety Report 9651734 (Version 1)
Quarter: 2013Q4

REPORT INFORMATION
  Report Type: Spontaneous
  Country: US (occurrence: US)
  Receive Date: 20131029
  Receipt Date: 20131029
  Transmission Date: 20140711
  Serious: No
  Sender: FDA-Public Use
  Company Number: US-BIOGENIDEC-2013BI074311

PATIENT
  Age: 52 Year
  Sex: Female

DRUGS (2)
  1. TECFIDERA [Suspect]
     Indication: MULTIPLE SCLEROSIS
     Route: 048
     Dates: start: 20130707, end: 20130714
  2. TECFIDERA [Suspect]
     Indication: MULTIPLE SCLEROSIS
     Route: 048
     Dates: start: 20130715

REACTIONS (13)
  - Pain in extremity [Recovered/Resolved]
  - Dizziness [Recovered/Resolved]
  - Paraesthesia [Recovered/Resolved]
  - Arthralgia [Recovered/Resolved]
  - Malaise [Not Recovered/Not Resolved]
  - Memory impairment [Not Recovered/Not Resolved]
  - Chills [Recovered/Resolved]
  - Vomiting [Recovered/Resolved]
  - Diarrhoea [Recovered/Resolved]
  - Abdominal pain upper [Recovered/Resolved]
  - Nausea [Not Recovered/Not Resolved]
  - Pruritus [Recovered/Resolved]
  - Abdominal pain [Recovered/Resolved]
